FAERS Safety Report 5628500-7 (Version None)
Quarter: 2008Q1

REPORT INFORMATION
  Report Type: 
  Country: None (occurrence: None)
  Receive Date: 20080215
  Receipt Date: 20080207
  Transmission Date: 20080703
  Serious: Yes (Other)
  Sender: FDA-Public Use
  Company Number: FR-PFIZER INC-2008006808

PATIENT
  Sex: Female
  Weight: 61 kg

DRUGS (2)
  1. CHANTIX [Suspect]
     Indication: SMOKING CESSATION THERAPY
  2. LEVOTHYROXINE SODIUM [Concomitant]
     Route: 048

REACTIONS (2)
  - BRONCHIAL HYPERREACTIVITY [None]
  - BRONCHITIS [None]
